FAERS Safety Report 20092028 (Version 1)
Quarter: 2021Q4

REPORT INFORMATION
  Report Type: Spontaneous
  Country: US (occurrence: None)
  Receive Date: 20211119
  Receipt Date: 20211119
  Transmission Date: 20220303
  Serious: No
  Sender: FDA-Public Use
  Company Number: None

PATIENT
  Age: 66 Year
  Sex: Male
  Weight: 71 kg

DRUGS (2)
  1. TOCILIZUMAB [Suspect]
     Active Substance: TOCILIZUMAB
     Indication: Upper respiratory tract infection
     Dosage: FREQUENCY : ONCE;?
     Route: 042
     Dates: start: 20210805, end: 20210805
  2. TOCILIZUMAB [Suspect]
     Active Substance: TOCILIZUMAB
     Dosage: FREQUENCY : DAILY;?
     Route: 042
     Dates: start: 20210805, end: 20210813

REACTIONS (3)
  - Pneumonia [None]
  - Hepatic enzyme increased [None]
  - Leukocytosis [None]

NARRATIVE: CASE EVENT DATE: 20210807
